FAERS Safety Report 4300907-X (Version None)
Quarter: 2004Q1

REPORT INFORMATION
  Report Type: 
  Country: None (occurrence: None)
  Receive Date: 20040220
  Receipt Date: 20040209
  Transmission Date: 20041129
  Serious: Yes (Disabling)
  Sender: FDA-Public Use
  Company Number: WAES 0402USA00735

PATIENT

DRUGS (2)
  1. VIOXX [Suspect]
     Indication: SWELLING
     Route: 048
  2. VIOXX [Suspect]
     Indication: PAIN
     Route: 048

REACTIONS (3)
  - CHOKING [None]
  - COUGH [None]
  - EPISTAXIS [None]
